FAERS Safety Report 9000132 (Version 1)
Quarter: 2013Q1

REPORT INFORMATION
  Report Type: Spontaneous
  Country: US (occurrence: US)
  Receive Date: 20130102
  Receipt Date: 20130102
  Transmission Date: 20140127
  Serious: Yes (Death)
  Sender: FDA-Public Use
  Company Number: US-ELI_LILLY_AND_COMPANY-US201212008310

PATIENT
  Sex: Female

DRUGS (2)
  1. GEMCITABINE HYDROCHLORIDE [Suspect]
  2. ALIMTA [Suspect]

REACTIONS (1)
  - Death [Fatal]
